FAERS Safety Report 7038160-9 (Version None)
Quarter: 2010Q4

REPORT INFORMATION
  Report Type: 
  Country: None (occurrence: None)
  Receive Date: 20101011
  Receipt Date: 20100923
  Transmission Date: 20110411
  Serious: Yes (Life-Threatening)
  Sender: FDA-Public Use
  Company Number: CA-MERCK-1009USA00897

PATIENT
  Sex: Female

DRUGS (6)
  1. ZETIA [Suspect]
     Indication: DYSLIPIDAEMIA
     Route: 048
     Dates: start: 20100716, end: 20100723
  2. CRESTOR [Concomitant]
     Indication: DYSLIPIDAEMIA
     Route: 065
     Dates: start: 20100611
  3. RIVASA [Concomitant]
     Indication: CARDIOVASCULAR EVENT PROPHYLAXIS
     Route: 065
     Dates: start: 20050825
  4. SYNTHROID [Concomitant]
     Indication: HYPOTHYROIDISM
     Route: 065
     Dates: start: 20001124
  5. COVERSYL (PERINDOPRIL ARGININE) [Concomitant]
     Indication: HYPERTENSION
     Route: 065
     Dates: start: 20051203
  6. METOPROLOL [Concomitant]
     Indication: HYPERTENSION
     Route: 065
     Dates: start: 20050523

REACTIONS (2)
  - OEDEMA PERIPHERAL [None]
  - SWELLING FACE [None]
